FAERS Safety Report 21519180 (Version 1)
Quarter: 2022Q4

REPORT INFORMATION
  Report Type: Spontaneous
  Country: US (occurrence: US)
  Receive Date: 20221028
  Receipt Date: 20221028
  Transmission Date: 20230112
  Serious: No
  Sender: FDA-Public Use
  Company Number: ALC2022US004149

PATIENT
  Sex: Female

DRUGS (2)
  1. INVELTYS [Suspect]
     Active Substance: LOTEPREDNOL ETABONATE
     Indication: Eye laser surgery
     Dosage: UNK
     Route: 065
     Dates: start: 20220124
  2. CEQUA [Suspect]
     Active Substance: CYCLOSPORINE
     Indication: Eye laser surgery
     Dosage: UNK
     Route: 065
     Dates: start: 2022

REACTIONS (2)
  - Heart rate irregular [Not Recovered/Not Resolved]
  - Dizziness [Not Recovered/Not Resolved]

NARRATIVE: CASE EVENT DATE: 20220124
